FAERS Safety Report 11052370 (Version 1)
Quarter: 2015Q2

REPORT INFORMATION
  Report Type: Spontaneous
  Country: US (occurrence: None)
  Receive Date: 20150420
  Receipt Date: 20150420
  Transmission Date: 20150821
  Serious: Yes (Hospitalization)
  Sender: FDA-Public Use
  Company Number: None

PATIENT
  Age: 54 Year
  Sex: Male
  Weight: 117.2 kg

DRUGS (1)
  1. LISINOPRIL. [Suspect]
     Active Substance: LISINOPRIL
     Indication: HYPERTENSION
     Dosage: 40 MG , EVERY DAY, PO
     Route: 048
     Dates: start: 20141110, end: 20141110

REACTIONS (3)
  - Tongue pruritus [None]
  - Lip swelling [None]
  - Periorbital oedema [None]

NARRATIVE: CASE EVENT DATE: 20141110
